FAERS Safety Report 9026066 (Version 1)
Quarter: 2013Q1

REPORT INFORMATION
  Report Type: Report from Study
  Country: GB (occurrence: GB)
  Receive Date: 20130122
  Receipt Date: 20130122
  Transmission Date: 20140127
  Serious: Yes (Hospitalization)
  Sender: FDA-Public Use
  Company Number: GB-ROCHE-1180930

PATIENT
  Sex: Female
  Weight: 59 kg

DRUGS (1)
  1. RITUXIMAB [Suspect]
     Indication: RHEUMATOID ARTHRITIS
     Dosage: LAST DOSE OF RITUXIMAB PRIOR TO SAE:20/MAY/2011
     Route: 065
     Dates: start: 20081017

REACTIONS (2)
  - Biliary sepsis [Unknown]
  - Cholecystitis acute [Unknown]
